FAERS Safety Report 17601441 (Version 1)
Quarter: 2020Q1

REPORT INFORMATION
  Report Type: Spontaneous
  Country: US (occurrence: US)
  Receive Date: 20200330
  Receipt Date: 20200330
  Transmission Date: 20200409
  Serious: No
  Sender: FDA-Public Use
  Company Number: US-GLENMARK PHARMACEUTICALS-2020GMK046322

PATIENT

DRUGS (2)
  1. FLUOCINOLONE ACETONIDE OIL, 0.01% (EAR DROPS) [Suspect]
     Active Substance: FLUOCINOLONE ACETONIDE
     Indication: PSORIASIS
     Dosage: 10 GTT, BID (FIVE DROPS INTO BOTH EARS TWO TIMES A DAY AS NEEDED)
     Route: 001
     Dates: start: 20200212, end: 20200217
  2. CELEBREX [Concomitant]
     Active Substance: CELECOXIB
     Indication: ARTHRALGIA
     Dosage: UNK
     Route: 065

REACTIONS (3)
  - Incorrect dose administered by device [Unknown]
  - Drug delivery system issue [Unknown]
  - Drug effective for unapproved indication [Unknown]

NARRATIVE: CASE EVENT DATE: 20200212
